FAERS Safety Report 5856862-4 (Version None)
Quarter: 2008Q3

REPORT INFORMATION
  Report Type: 
  Country: None (occurrence: None)
  Receive Date: 20080821
  Receipt Date: 20080811
  Transmission Date: 20090109
  Serious: Yes (Hospitalization, Other)
  Sender: FDA-Public Use
  Company Number: 51390

PATIENT
  Age: 69 Year
  Sex: 0

DRUGS (1)
  1. LEUCOVORIN CALCIUM [Suspect]
     Indication: COLON CANCER
     Dosage: IV
     Route: 042
     Dates: start: 20070530, end: 20070829

REACTIONS (5)
  - CHILLS [None]
  - HAEMATEMESIS [None]
  - HEART RATE INCREASED [None]
  - OESOPHAGITIS [None]
  - STENOTROPHOMONAS INFECTION [None]
